FAERS Safety Report 4332578-0 (Version None)
Quarter: 2004Q1

REPORT INFORMATION
  Report Type: 
  Country: None (occurrence: None)
  Receive Date: 20040330
  Receipt Date: 20040316
  Transmission Date: 20041129
  Serious: Yes (Death)
  Sender: FDA-Public Use
  Company Number: FR-JNJFOC-20040305577

PATIENT
  Age: 60 Year
  Sex: Female

DRUGS (2)
  1. INFLIXMIAB (INFLIXIMAB, RECOMBINANT) LYOPHILIZED POWDER [Suspect]
     Indication: CRYOGLOBULINAEMIA
     Dosage: 5 MG/KG, 2 IN, INTRAVENOUS
     Route: 042
  2. INFLIXMIAB (INFLIXIMAB, RECOMBINANT) LYOPHILIZED POWDER [Suspect]
     Indication: VASCULITIS
     Dosage: 5 MG/KG, 2 IN, INTRAVENOUS
     Route: 042

REACTIONS (5)
  - CONDITION AGGRAVATED [None]
  - CRYOGLOBULINAEMIA [None]
  - HEPATITIS C [None]
  - RENAL FAILURE [None]
  - VASCULITIS [None]
